FAERS Safety Report 12824063 (Version 1)
Quarter: 2016Q4

REPORT INFORMATION
  Report Type: Spontaneous
  Country: US (occurrence: US)
  Receive Date: 20161007
  Receipt Date: 20161007
  Transmission Date: 20170207
  Serious: Yes (Hospitalization)
  Sender: FDA-Public Use
  Company Number: None

PATIENT
  Age: 29 Year
  Sex: Female
  Weight: 78.75 kg

DRUGS (7)
  1. CODONE-ACETAMINOPHEN [Concomitant]
  2. TYLENOL [Concomitant]
     Active Substance: ACETAMINOPHEN
  3. VITAMIN C [Concomitant]
     Active Substance: ASCORBIC ACID
  4. PRE-NATAL VITAMINS [Concomitant]
  5. DILAUDIT [Concomitant]
  6. IBUPROFEN. [Concomitant]
     Active Substance: IBUPROFEN
  7. ANCEF [Suspect]
     Active Substance: CEFAZOLIN SODIUM
     Indication: CAESAREAN SECTION
     Dates: start: 20160927, end: 20160927

REACTIONS (7)
  - Rash [None]
  - Urticaria [None]
  - Urine output decreased [None]
  - Swelling [None]
  - Therapy non-responder [None]
  - Palpitations [None]
  - Chromaturia [None]

NARRATIVE: CASE EVENT DATE: 20160928
